FAERS Safety Report 8846923 (Version 1)
Quarter: 2012Q4

REPORT INFORMATION
  Report Type: Spontaneous
  Country: US (occurrence: None)
  Receive Date: 20121016
  Receipt Date: 20121016
  Transmission Date: 20130627
  Serious: Yes (Death)
  Sender: FDA-Public Use
  Company Number: DKLU1085160

PATIENT
  Age: 5 Year
  Sex: Male

DRUGS (2)
  1. SABRIL [Suspect]
     Indication: INFANTILE SPASMS
     Dosage: 500 mg milligram(s), AM, Oral
     Route: 048
     Dates: start: 20091209
  2. SABRIL [Suspect]
     Indication: INFANTILE SPASMS
     Dosage: 750 mg milligram(s), Bedtime, Oral
     Route: 048
     Dates: start: 20091209

REACTIONS (1)
  - Death [None]
